FAERS Safety Report 9612656 (Version 1)
Quarter: 2013Q4

REPORT INFORMATION
  Report Type: Spontaneous
  Country: US (occurrence: US)
  Receive Date: 20131010
  Receipt Date: 20131010
  Transmission Date: 20140711
  Serious: No
  Sender: FDA-Public Use
  Company Number: US-BAYER-2013-111887

PATIENT
  Age: 35 Year
  Sex: Female

DRUGS (2)
  1. HELIXATE FS [Suspect]
     Indication: FACTOR VIII DEFICIENCY
     Dosage: 1 UNK, UNK
     Route: 042
     Dates: start: 20130907, end: 20130907
  2. HELIXATE FS [Suspect]
     Indication: FACTOR VIII DEFICIENCY
     Dosage: 1 UNK, UNK
     Route: 042
     Dates: start: 20130907, end: 20130907

REACTIONS (2)
  - Hypoaesthesia [Recovered/Resolved]
  - Paraesthesia [Recovered/Resolved]
